FAERS Safety Report 4897840-1 (Version None)
Quarter: 2006Q1

REPORT INFORMATION
  Report Type: 
  Country: None (occurrence: None)
  Receive Date: 20060201
  Receipt Date: 20060130
  Transmission Date: 20060701
  Serious: Yes (Hospitalization, Other)
  Sender: FDA-Public Use
  Company Number: US-GLAXOSMITHKLINE-A0591518A

PATIENT
  Age: 76 Year
  Sex: Female

DRUGS (5)
  1. ADVAIR DISKUS 100/50 [Suspect]
     Indication: ASTHMA
     Dosage: 1PUFF TWICE PER DAY
     Route: 055
  2. NORVASC [Concomitant]
  3. AVAPRO [Concomitant]
  4. LASIX [Concomitant]
  5. ALBUTEROL + IPRATROPIUM BROMIDE [Concomitant]

REACTIONS (4)
  - BORDERLINE GLAUCOMA [None]
  - BRONCHITIS [None]
  - DYSPNOEA [None]
  - EYE DISORDER [None]
